FAERS Safety Report 9791103 (Version 1)
Quarter: 2013Q4

REPORT INFORMATION
  Report Type: Spontaneous
  Country: US (occurrence: US)
  Receive Date: 20131231
  Receipt Date: 20131231
  Transmission Date: 20140711
  Serious: No
  Sender: FDA-Public Use
  Company Number: US-BIOGENIDEC-2013BI123627

PATIENT
  Sex: Female
  Weight: 94 kg

DRUGS (4)
  1. TECFIDERA [Suspect]
     Indication: MULTIPLE SCLEROSIS
     Route: 048
     Dates: start: 20131213
  2. OXCARBAZEPINE [Concomitant]
  3. JUNEL [Concomitant]
  4. VITAMIN D [Concomitant]

REACTIONS (4)
  - Pollakiuria [Not Recovered/Not Resolved]
  - Frequent bowel movements [Not Recovered/Not Resolved]
  - Headache [Not Recovered/Not Resolved]
  - Feeling hot [Recovered/Resolved]
